FAERS Safety Report 15979480 (Version 1)
Quarter: 2019Q1

REPORT INFORMATION
  Report Type: Spontaneous
  Country: US (occurrence: US)
  Receive Date: 20190219
  Receipt Date: 20190219
  Transmission Date: 20190418
  Serious: No
  Sender: FDA-Public Use
  Company Number: US-PFIZER INC-2019070921

PATIENT
  Age: 3 Year
  Sex: Female

DRUGS (2)
  1. GENOTROPIN MQ [Suspect]
     Active Substance: SOMATROPIN
     Indication: ADRENAL INSUFFICIENCY
  2. GENOTROPIN MQ [Suspect]
     Active Substance: SOMATROPIN
     Indication: DYSPLASIA
     Dosage: UNK

REACTIONS (5)
  - Globulins decreased [Unknown]
  - Product use in unapproved indication [Unknown]
  - Product dose omission [Unknown]
  - Blood alkaline phosphatase decreased [Unknown]
  - Insulin-like growth factor decreased [Unknown]
